FAERS Safety Report 8242871-7 (Version None)
Quarter: 2012Q1

REPORT INFORMATION
  Report Type: 
  Country: None (occurrence: None)
  Receive Date: 20120329
  Receipt Date: 20120323
  Transmission Date: 20120608
  Serious: Yes (Hospitalization)
  Sender: FDA-Public Use
  Company Number: BR-PFIZER INC-2012076220

PATIENT
  Age: 74 Year
  Sex: Male
  Weight: 60 kg

DRUGS (2)
  1. SUTENT [Suspect]
     Indication: RENAL CANCER METASTATIC
     Dosage: 50 MG, 1X/DAY (CYCLES OF 4 BY 2 DAYS)
     Route: 048
     Dates: start: 20120304, end: 20120319
  2. MORPHINE SULFATE [Concomitant]
     Dosage: 30 MG, 4X/DAY

REACTIONS (4)
  - VOMITING [None]
  - DECREASED APPETITE [None]
  - ASTHENIA [None]
  - DEHYDRATION [None]
